FAERS Safety Report 12611790 (Version 1)
Quarter: 2016Q3

REPORT INFORMATION
  Report Type: Spontaneous
  Country: US (occurrence: US)
  Receive Date: 20160801
  Receipt Date: 20160801
  Transmission Date: 20161109
  Serious: No
  Sender: FDA-Public Use
  Company Number: US-PFIZER INC-2928437

PATIENT
  Age: 49 Year
  Sex: Female

DRUGS (2)
  1. METHOTREXATE SODIUM. [Suspect]
     Active Substance: METHOTREXATE SODIUM
     Indication: SYSTEMIC LUPUS ERYTHEMATOSUS
     Dosage: 0.3 MG,FREQ:1 WEEK,INTERVAL: 1
     Route: 058
     Dates: start: 20150628
  2. PLAQUENIL /00072602/ [Concomitant]
     Active Substance: HYDROXYCHLOROQUINE DIPHOSPHATE
     Indication: SYSTEMIC LUPUS ERYTHEMATOSUS
     Dosage: 200 MG, FREQ: 2 DAY, INTERVAL :1
     Route: 048
     Dates: start: 20150628

REACTIONS (9)
  - Administration site bruise [Recovered/Resolved]
  - Drug dispensing error [Recovered/Resolved]
  - Stomatitis [Recovered/Resolved]
  - Abdominal discomfort [Recovered/Resolved]
  - Diarrhoea [Recovered/Resolved]
  - Haematoma [Recovered/Resolved]
  - Nausea [Not Recovered/Not Resolved]
  - Injection site pain [Recovered/Resolved]
  - Product label issue [Recovered/Resolved]

NARRATIVE: CASE EVENT DATE: 20150629
